FAERS Safety Report 4310409-2 (Version None)
Quarter: 2004Q1

REPORT INFORMATION
  Report Type: 
  Country: None (occurrence: None)
  Receive Date: 20040301
  Receipt Date: 20040220
  Transmission Date: 20041129
  Serious: Yes (Hospitalization)
  Sender: FDA-Public Use
  Company Number: HQWYE609628JAN04

PATIENT
  Age: 78 Year
  Sex: Male

DRUGS (6)
  1. CORDARONE [Suspect]
     Dosage: 200 MG TABLETS, ORAL
     Route: 048
  2. SINTROM [Suspect]
     Dosage: 2 MG 1X PER 1 DAY ORAL
     Route: 048
  3. ALLOPURINOL [Suspect]
     Dosage: 100 MG 1X PER 1 DAY ORAL
     Route: 048
  4. EQUANIL [Concomitant]
  5. LASIX [Concomitant]
  6. ANDROCUR (CYPROTERONE ACETATE) [Concomitant]

REACTIONS (5)
  - DRUG INTERACTION [None]
  - HAEMATOMA [None]
  - HAEMOGLOBIN DECREASED [None]
  - INTERNATIONAL NORMALISED RATIO INCREASED [None]
  - PROTHROMBIN TIME SHORTENED [None]
